FAERS Safety Report 14686795 (Version 11)
Quarter: 2019Q1

REPORT INFORMATION
  Report Type: Spontaneous
  Country: US (occurrence: US)
  Receive Date: 20180327
  Receipt Date: 20190304
  Transmission Date: 20190417
  Serious: Yes (Hospitalization)
  Sender: FDA-Public Use
  Company Number: US-ACTELION-A-NJ2018-169685

PATIENT
  Age: 63 Year
  Sex: Male

DRUGS (4)
  1. ADEMPAS [Suspect]
     Active Substance: RIOCIGUAT
     Indication: PRODUCT USED FOR UNKNOWN INDICATION
     Dosage: 1.5 MG, TID
     Route: 065
     Dates: start: 20180323
  2. OPSUMIT [Suspect]
     Active Substance: MACITENTAN
     Indication: PULMONARY ARTERIAL HYPERTENSION
     Dosage: 10 MG, QD
     Route: 048
     Dates: start: 20180209
  3. ADEMPAS [Suspect]
     Active Substance: RIOCIGUAT
     Dosage: 2.5 MG, BID
     Route: 065
  4. LASIX [Concomitant]
     Active Substance: FUROSEMIDE

REACTIONS (13)
  - Oedema peripheral [Recovered/Resolved]
  - Decreased appetite [Not Recovered/Not Resolved]
  - Fluid retention [Unknown]
  - Dizziness postural [Recovered/Resolved]
  - Arthralgia [Not Recovered/Not Resolved]
  - Abdominal distension [Recovering/Resolving]
  - Weight increased [Recovered/Resolved]
  - Weight fluctuation [Unknown]
  - Oedema [Unknown]
  - Pulmonary oedema [Recovered/Resolved]
  - Peripheral swelling [Recovered/Resolved]
  - Carbon dioxide increased [Recovered/Resolved]
  - Condition aggravated [Unknown]

NARRATIVE: CASE EVENT DATE: 20180313
